FAERS Safety Report 5879830-5 (Version None)
Quarter: 2008Q3

REPORT INFORMATION
  Report Type: 
  Country: None (occurrence: None)
  Receive Date: 20080912
  Receipt Date: 20080908
  Transmission Date: 20090109
  Serious: Yes (Hospitalization)
  Sender: FDA-Public Use
  Company Number: US-ASTRAZENECA-2008UW18697

PATIENT
  Age: 50 Year
  Sex: Female

DRUGS (9)
  1. ESOMEPRAZOLE [Suspect]
     Indication: GASTROOESOPHAGEAL REFLUX DISEASE
     Route: 048
     Dates: start: 20031119, end: 20040102
  2. FENTANYL [Concomitant]
  3. CETACAINE [Concomitant]
  4. ALLEGRA [Concomitant]
  5. LEVONORGESTREL [Concomitant]
  6. CALTRATE [Concomitant]
  7. HYDROCHLOROTHIAZIDE [Concomitant]
  8. VERSED [Concomitant]
  9. ETHINYL ESTRADIOL TAB [Concomitant]

REACTIONS (3)
  - CHEST PAIN [None]
  - CONDITION AGGRAVATED [None]
  - DYSPNOEA [None]
